FAERS Safety Report 6043724-5 (Version None)
Quarter: 2009Q1

REPORT INFORMATION
  Report Type: 
  Country: None (occurrence: None)
  Receive Date: 20090120
  Receipt Date: 20090109
  Transmission Date: 20090719
  Serious: Yes (Other)
  Sender: FDA-Public Use
  Company Number: PHHY2009MT01048

PATIENT
  Sex: Male

DRUGS (2)
  1. ACLASTA [Suspect]
     Indication: OSTEOPOROSIS
     Dosage: ONE 5 MG/100 ML INFUSION
     Dates: start: 20081205
  2. ACLASTA [Suspect]
     Indication: OSTEITIS DEFORMANS

REACTIONS (2)
  - ANGINA PECTORIS [None]
  - CHEST PAIN [None]
